FAERS Safety Report 7607975-8 (Version None)
Quarter: 2011Q3

REPORT INFORMATION
  Report Type: 
  Country: None (occurrence: None)
  Receive Date: 20110714
  Receipt Date: 20110707
  Transmission Date: 20111222
  Serious: No
  Sender: FDA-Public Use
  Company Number: US-PFIZER INC-2011153410

PATIENT
  Sex: Female
  Weight: 59.41 kg

DRUGS (5)
  1. SYNTHROID [Concomitant]
     Indication: THYROID DISORDER
     Dosage: UNK
  2. XALATAN [Suspect]
     Dosage: UNK
     Dates: start: 20010101, end: 20110101
  3. METOPROLOL [Concomitant]
     Indication: HEART RATE INCREASED
     Dosage: UNK
  4. VALIUM [Concomitant]
     Indication: INSOMNIA
     Dosage: 5 MG, UNK
  5. LATANOPROST [Suspect]
     Dosage: UNK
     Dates: start: 20110401

REACTIONS (2)
  - VITAMIN B12 DECREASED [None]
  - DRY EYE [None]
